FAERS Safety Report 5389382-4 (Version None)
Quarter: 2007Q3

REPORT INFORMATION
  Report Type: 
  Country: None (occurrence: None)
  Receive Date: 20070717
  Receipt Date: 20070705
  Transmission Date: 20080115
  Serious: Yes (Other)
  Sender: FDA-Public Use
  Company Number: GT-ROCHE-507042

PATIENT
  Sex: Female

DRUGS (1)
  1. BONIVA [Suspect]
     Indication: OSTEOPOROSIS
     Dosage: DOSAGE REGIMEN REPORTED AS 150 MG
     Route: 048
     Dates: start: 20060928

REACTIONS (1)
  - COLONIC OBSTRUCTION [None]
